FAERS Safety Report 8986908 (Version 1)
Quarter: 2012Q4

REPORT INFORMATION
  Report Type: 
  Country: DE (occurrence: DE)
  Receive Date: 20121226
  Receipt Date: 20121226
  Transmission Date: 20130627
  Serious: Yes (Hospitalization)
  Sender: FDA-Public Use
  Company Number: DE-ALLERGAN-1217378US

PATIENT
  Age: 47 Year
  Sex: Male
  Weight: 92 kg

DRUGS (2)
  1. BOTOX� [Suspect]
     Indication: OVERACTIVE BLADDER
     Dosage: 300 UNITS, single
     Dates: start: 20121123, end: 20121123
  2. BOTOX� [Suspect]
     Indication: DRUG USE FOR UNKNOWN INDICATION

REACTIONS (6)
  - Chest pain [Recovered/Resolved]
  - Acute myocardial infarction [Unknown]
  - Cold sweat [Recovered/Resolved]
  - Troponin increased [Recovered/Resolved]
  - Mitral valve incompetence [Unknown]
  - Tricuspid valve incompetence [Unknown]
